FAERS Safety Report 25797244 (Version 2)
Quarter: 2025Q3

REPORT INFORMATION
  Report Type: Spontaneous
  Country: US (occurrence: US)
  Receive Date: 20250912
  Receipt Date: 20250930
  Transmission Date: 20251021
  Serious: No
  Sender: VERTEX
  Company Number: US-VERTEX PHARMACEUTICALS-2025-014503

PATIENT
  Sex: Female

DRUGS (3)
  1. JOURNAVX [Suspect]
     Active Substance: SUZETRIGINE
     Indication: Chronic fatigue syndrome
     Route: 048
     Dates: start: 202507, end: 2025
  2. JOURNAVX [Suspect]
     Active Substance: SUZETRIGINE
     Dosage: 50 MG, QD (1 TABLET QD)
     Route: 048
     Dates: start: 2025, end: 2025
  3. JOURNAVX [Suspect]
     Active Substance: SUZETRIGINE
     Dosage: 25 MILLIGRAM (1/2 TABLET), QD
     Route: 048
     Dates: start: 2025, end: 202508

REACTIONS (7)
  - Hot flush [Recovered/Resolved]
  - Constipation [Recovered/Resolved]
  - Pruritus [Not Recovered/Not Resolved]
  - Rash [Recovering/Resolving]
  - Fungal infection [Unknown]
  - Hypoaesthesia [Not Recovered/Not Resolved]
  - Off label use [Unknown]

NARRATIVE: CASE EVENT DATE: 20250101
